FAERS Safety Report 8090044-3 (Version None)
Quarter: 2012Q1

REPORT INFORMATION
  Report Type: 
  Country: None (occurrence: None)
  Receive Date: 20120129
  Receipt Date: 20111031
  Transmission Date: 20120608
  Serious: No
  Sender: FDA-Public Use
  Company Number: US-ABBOTT-11P-163-0869489-00

PATIENT
  Sex: Male
  Weight: 81.72 kg

DRUGS (4)
  1. IBUPROFEN [Concomitant]
     Indication: ARTHRALGIA
  2. HUMIRA [Suspect]
     Indication: PSORIASIS
     Dates: start: 20111030
  3. DICLOFENAC [Concomitant]
     Indication: ARTHRALGIA
  4. HUMIRA [Suspect]
     Indication: PSORIATIC ARTHROPATHY
     Dates: start: 20110501, end: 20110822

REACTIONS (5)
  - OROPHARYNGEAL PAIN [None]
  - SINUS HEADACHE [None]
  - FEELING ABNORMAL [None]
  - HEADACHE [None]
  - COUGH [None]
